FAERS Safety Report 6493784-2 (Version None)
Quarter: 2009Q4

REPORT INFORMATION
  Report Type: 
  Country: None (occurrence: None)
  Receive Date: 20091214
  Receipt Date: 20081101
  Transmission Date: 20100525
  Serious: No
  Sender: FDA-Public Use
  Company Number: US-BRISTOL-MYERS SQUIBB COMPANY-14393292

PATIENT
  Age: 11 Year

DRUGS (2)
  1. ABILIFY [Suspect]
  2. SEROQUEL [Suspect]

REACTIONS (1)
  - DYSKINESIA [None]
